FAERS Safety Report 9121326 (Version 2)
Quarter: 2013Q1

REPORT INFORMATION
  Report Type: Spontaneous
  Country: IT (occurrence: IT)
  Receive Date: 20130225
  Receipt Date: 20130301
  Transmission Date: 20140127
  Serious: Yes (Life-Threatening)
  Sender: FDA-Public Use
  Company Number: IT-SANOFI-AVENTIS-2013SA015736

PATIENT
  Age: 77 Year
  Sex: Male

DRUGS (2)
  1. CLEXANE [Suspect]
     Indication: DEEP VEIN THROMBOSIS
     Dosage: FORM: PRE FILLED SYRINGE
     Route: 058
     Dates: start: 201212, end: 20130124
  2. CLEXANE [Suspect]
     Indication: DEEP VEIN THROMBOSIS
     Dosage: FORM: PRE FILLED SYRINGE
     Route: 058
     Dates: start: 20130125, end: 20130211

REACTIONS (1)
  - Anaemia [Not Recovered/Not Resolved]
